FAERS Safety Report 13459825 (Version 1)
Quarter: 2017Q2

REPORT INFORMATION
  Report Type: Spontaneous
  Country: US (occurrence: US)
  Receive Date: 20170420
  Receipt Date: 20170420
  Transmission Date: 20170830
  Serious: No
  Sender: FDA-Public Use
  Company Number: US-TEVA-665265USA

PATIENT
  Sex: Female

DRUGS (1)
  1. OLANZAPINE. [Suspect]
     Active Substance: OLANZAPINE
     Indication: INSOMNIA
     Dosage: PRN

REACTIONS (3)
  - Drug ineffective [Unknown]
  - Intentional product use issue [Unknown]
  - Drug dispensing error [Unknown]
